FAERS Safety Report 7808841-5 (Version None)
Quarter: 2011Q4

REPORT INFORMATION
  Report Type: 
  Country: None (occurrence: None)
  Receive Date: 20111012
  Receipt Date: 20111007
  Transmission Date: 20120403
  Serious: Yes (Other)
  Sender: FDA-Public Use
  Company Number: GB-B.I. PHARMACEUTICALS,INC./RIDGEFIELD-2011-UK-01081UK

PATIENT
  Age: 72 Year
  Sex: Female
  Weight: 62 kg

DRUGS (6)
  1. OMEPRAZOLE [Concomitant]
  2. SERETIDE [Concomitant]
  3. LEVOTHYROXINE SODIUM [Concomitant]
  4. VENTOLIN [Concomitant]
  5. TIOTROPIUM [Suspect]
     Indication: CHRONIC OBSTRUCTIVE PULMONARY DISEASE
     Dosage: 18 MCG
     Route: 055
     Dates: start: 20110727, end: 20110915
  6. SIMVASTATIN [Concomitant]

REACTIONS (2)
  - MALAISE [None]
  - DERMATITIS [None]
